FAERS Safety Report 8548046-6 (Version None)
Quarter: 2012Q3

REPORT INFORMATION
  Report Type: 
  Country: None (occurrence: None)
  Receive Date: 20120730
  Receipt Date: 20120724
  Transmission Date: 20120928
  Serious: Yes (Death)
  Sender: FDA-Public Use
  Company Number: DE-ROCHE-662995

PATIENT
  Sex: Female

DRUGS (2)
  1. METHOTREXATE [Suspect]
     Indication: RHEUMATOID ARTHRITIS
     Route: 048
     Dates: start: 20041201, end: 20071110
  2. MABTHERA [Suspect]
     Indication: RHEUMATOID ARTHRITIS
     Dosage: GIVEN ON 24 MAY 2007 AND ON 7 JUN 2007
     Route: 065
     Dates: start: 20070524, end: 20070607

REACTIONS (2)
  - DEATH [None]
  - THYROID CANCER RECURRENT [None]
